FAERS Safety Report 8830677 (Version 2)
Quarter: 2012Q4

REPORT INFORMATION
  Report Type: 
  Country: IT (occurrence: IT)
  Receive Date: 20121009
  Receipt Date: 20121012
  Transmission Date: 20130627
  Serious: Yes (Death, Other)
  Sender: FDA-Public Use
  Company Number: IT-JNJFOC-20121004184

PATIENT
  Sex: Female

DRUGS (6)
  1. DOXORUBICIN [Suspect]
     Indication: BREAST CANCER
     Dosage: at 3 weeks interval
     Route: 042
  2. ADRIBLASTINA [Suspect]
     Indication: BREAST CANCER
     Dosage: at 3 weeks interval
     Route: 042
  3. PACLITAXEL [Suspect]
     Indication: BREAST CANCER
     Dosage: infusion over 3 hours given at 3-week interval
     Route: 042
  4. CYCLOPHOSPHAMIDE [Suspect]
     Indication: BREAST CANCER
     Dosage: days 1 and 8; at 4 weeks interval
     Route: 042
  5. METHOTREXATE [Suspect]
     Indication: BREAST CANCER
     Dosage: days 1 and 8; at 4 weeks interval
     Route: 042
  6. FLUOROURACIL [Suspect]
     Indication: BREAST CANCER
     Dosage: on days 1 and 8 at 4-week interval
     Route: 042

REACTIONS (4)
  - Pneumocystis jiroveci infection [Fatal]
  - Multi-organ failure [Fatal]
  - Pulmonary embolism [Fatal]
  - Venous thrombosis [Fatal]
